FAERS Safety Report 14962456 (Version 2)
Quarter: 2018Q2

REPORT INFORMATION
  Report Type: Spontaneous
  Country: US (occurrence: US)
  Receive Date: 20180601
  Receipt Date: 20180607
  Transmission Date: 20180711
  Serious: No
  Sender: FDA-Public Use
  Company Number: US-JNJFOC-20180516438

PATIENT
  Age: 55 Year
  Sex: Male
  Weight: 68.04 kg

DRUGS (2)
  1. MENS ROGAINE EXTRA STRENGTH [Suspect]
     Active Substance: MINOXIDIL
     Indication: ALOPECIA
     Route: 061
  2. MENS ROGAINE EXTRA STRENGTH [Suspect]
     Active Substance: MINOXIDIL
     Indication: ALOPECIA
     Dosage: HALF CAPFUL AMOUNT FOR THE FIRST 4 TIMES
     Route: 061
     Dates: start: 20180409

REACTIONS (4)
  - Product administered at inappropriate site [Unknown]
  - Drug administration error [Unknown]
  - Product formulation issue [Unknown]
  - Overdose [Unknown]

NARRATIVE: CASE EVENT DATE: 201804
